FAERS Safety Report 6696751-9 (Version None)
Quarter: 2010Q2

REPORT INFORMATION
  Report Type: 
  Country: None (occurrence: None)
  Receive Date: 20100426
  Receipt Date: 20100414
  Transmission Date: 20101027
  Serious: Yes (Hospitalization)
  Sender: FDA-Public Use
  Company Number: GB-ELI_LILLY_AND_COMPANY-GB200911004259

PATIENT
  Sex: Male
  Weight: 77.5 kg

DRUGS (15)
  1. GEMCITABINE HCL [Suspect]
     Indication: DIFFUSE LARGE B-CELL LYMPHOMA
     Dosage: 1463 MG, UNK
     Route: 042
     Dates: start: 20091029, end: 20091029
  2. CYCLOPHOSPHAMIDE [Suspect]
     Indication: DIFFUSE LARGE B-CELL LYMPHOMA
     Dosage: 1450 MG, UNK
     Route: 042
     Dates: start: 20091029, end: 20091029
  3. VINCRISTINE SULFATE [Suspect]
     Indication: DIFFUSE LARGE B-CELL LYMPHOMA
     Dosage: 2 MG, UNK
     Route: 042
     Dates: start: 20091029, end: 20091029
  4. RITUXIMAB [Suspect]
     Indication: DIFFUSE LARGE B-CELL LYMPHOMA
     Dosage: 100 MG, UNK
     Route: 042
     Dates: start: 20091028, end: 20091029
  5. OTHER PHARMA COMPANY INV DRUG [Suspect]
     Indication: DIFFUSE LARGE B-CELL LYMPHOMA
     Dosage: 100 MG, DAILY (1/D)
     Route: 048
     Dates: start: 20091029, end: 20091101
  6. TAZOCIN [Concomitant]
     Indication: SEPSIS
     Dosage: 4.5 G, 4/D
     Route: 042
     Dates: start: 20091030, end: 20091109
  7. AMIKACIN [Concomitant]
     Indication: SEPSIS
     Dosage: 1200 MG, EACH EVENING
     Route: 042
     Dates: start: 20091006, end: 20091109
  8. ALLOPURINOL [Concomitant]
     Indication: PROPHYLAXIS
     Dosage: 300 MG, DAILY (1/D)
     Route: 048
     Dates: start: 20091028
  9. COTRIM [Concomitant]
     Indication: ANTIBIOTIC THERAPY
     Dosage: 480 MG, DAILY (1/D)
     Route: 048
     Dates: start: 20091028
  10. FLUCONAZOLE [Concomitant]
     Indication: ANTIBIOTIC THERAPY
     Dosage: 100 MG, DAILY (1/D)
     Route: 048
     Dates: start: 20091028
  11. LANSOPRAZOLE [Concomitant]
     Indication: ANTIBIOTIC THERAPY
     Dosage: 15 MG, DAILY (1/D)
     Route: 048
     Dates: start: 20091028
  12. CORSODYL [Concomitant]
     Indication: PROPHYLAXIS
     Dosage: 10 ML, 4/D
     Route: 048
     Dates: start: 20091028
  13. TACROLIMUS [Concomitant]
     Indication: IMMUNOSUPPRESSANT DRUG THERAPY
     Dosage: 4 MG, 2/D
     Route: 048
     Dates: start: 20091028
  14. PRAVASTATIN [Concomitant]
     Dosage: 40 MG, DAILY (1/D)
     Route: 048
  15. METOCLOPRAMIDE HYDROCHLORIDE [Concomitant]
     Indication: PROPHYLAXIS OF NAUSEA AND VOMITING
     Dosage: 10 MG, AS NEEDED UP TO 4/D
     Dates: start: 20091104

REACTIONS (4)
  - APPLICATION SITE CELLULITIS [None]
  - INFUSION RELATED REACTION [None]
  - LOWER RESPIRATORY TRACT INFECTION [None]
  - THROMBOSIS [None]
